FAERS Safety Report 4286795-9 (Version None)
Quarter: 2004Q1

REPORT INFORMATION
  Report Type: 
  Country: None (occurrence: None)
  Receive Date: 20040204
  Receipt Date: 20040122
  Transmission Date: 20041129
  Serious: Yes (Hospitalization)
  Sender: FDA-Public Use
  Company Number: DSA_60390_2004

PATIENT
  Age: 50 Year
  Sex: Female

DRUGS (3)
  1. MYSOLINE [Suspect]
     Indication: EPILEPSY
     Dosage: 500 MG BID PO
     Route: 048
     Dates: end: 20031126
  2. DIHYDANTOIN [Concomitant]
  3. DEPAKENE [Concomitant]

REACTIONS (1)
  - EPILEPSY [None]
